FAERS Safety Report 17895169 (Version 1)
Quarter: 2020Q2

REPORT INFORMATION
  Report Type: Spontaneous
  Country: US (occurrence: US)
  Receive Date: 20200615
  Receipt Date: 20200615
  Transmission Date: 20200714
  Serious: Yes (Other)
  Sender: FDA-Public Use
  Company Number: US-PFIZER INC-2020231749

PATIENT
  Age: 59 Year
  Sex: Female

DRUGS (1)
  1. AROMASIN [Suspect]
     Active Substance: EXEMESTANE
     Indication: BREAST CANCER METASTATIC
     Dosage: UNK
     Dates: start: 201409

REACTIONS (4)
  - Upper limb fracture [Unknown]
  - Fall [Unknown]
  - Bone loss [Unknown]
  - Hip fracture [Unknown]

NARRATIVE: CASE EVENT DATE: 2014
